FAERS Safety Report 14616682 (Version 1)
Quarter: 2018Q1

REPORT INFORMATION
  Report Type: Spontaneous
  Country: US (occurrence: US)
  Receive Date: 20180308
  Receipt Date: 20180308
  Transmission Date: 20180509
  Serious: Yes (Other)
  Sender: FDA-Public Use
  Company Number: None

PATIENT
  Age: 78 Year
  Sex: Female
  Weight: 101 kg

DRUGS (1)
  1. METHYLENE BLUE. [Suspect]
     Active Substance: METHYLENE BLUE
     Indication: BIOPSY LYMPH GLAND
     Dosage: ?          OTHER FREQUENCY:ONCE;?
     Dates: start: 20171127

REACTIONS (2)
  - Injection site necrosis [None]
  - Injection site discolouration [None]

NARRATIVE: CASE EVENT DATE: 20171127
